FAERS Safety Report 7200266-9 (Version None)
Quarter: 2010Q4

REPORT INFORMATION
  Report Type: 
  Country: None (occurrence: None)
  Receive Date: 20101228
  Receipt Date: 20101222
  Transmission Date: 20110411
  Serious: Yes (Hospitalization)
  Sender: FDA-Public Use
  Company Number: B0572755A

PATIENT
  Sex: Male

DRUGS (12)
  1. ZYLORIC [Suspect]
     Indication: GOUT
     Dosage: 100MG PER DAY
     Route: 048
     Dates: start: 20090219, end: 20090323
  2. AUGMENTIN '125' [Suspect]
     Indication: PRODUCT USED FOR UNKNOWN INDICATION
     Dosage: 1G THREE TIMES PER DAY
     Route: 048
     Dates: start: 20090126, end: 20090205
  3. PREVISCAN [Suspect]
     Indication: PRODUCT USED FOR UNKNOWN INDICATION
     Dosage: 20MG PER DAY
     Route: 048
     Dates: start: 20090201, end: 20090325
  4. ARKOGELULES COAL VEGETAL GELULES [Concomitant]
     Indication: PRODUCT USED FOR UNKNOWN INDICATION
     Route: 048
     Dates: start: 20090301, end: 20090301
  5. SERETIDE [Concomitant]
     Dosage: 1UNIT TWICE PER DAY
     Route: 055
  6. KARDEGIC [Concomitant]
     Dosage: 75MG PER DAY
     Route: 048
  7. TEMESTA [Concomitant]
     Dosage: 1MG PER DAY
     Route: 048
  8. SPIRIVA [Concomitant]
     Dosage: 1UNIT PER DAY
     Route: 055
  9. TAHOR [Concomitant]
     Dosage: 10MG PER DAY
     Route: 048
  10. OGAST [Concomitant]
     Dosage: 30MG PER DAY
     Route: 048
  11. LASIX [Concomitant]
     Dosage: 40MG TWICE PER DAY
     Route: 048
  12. ALDACTONE [Concomitant]
     Dosage: 75MG PER DAY
     Route: 048

REACTIONS (8)
  - BILIARY DILATATION [None]
  - BLOOD ALKALINE PHOSPHATASE INCREASED [None]
  - CHROMATURIA [None]
  - GAMMA-GLUTAMYLTRANSFERASE INCREASED [None]
  - HEPATITIS CHOLESTATIC [None]
  - HEPATOMEGALY [None]
  - PRURITUS [None]
  - TRANSAMINASES INCREASED [None]
